FAERS Safety Report 4558361-9 (Version None)
Quarter: 2005Q1

REPORT INFORMATION
  Report Type: 
  Country: None (occurrence: None)
  Receive Date: 20050121
  Receipt Date: 20041130
  Transmission Date: 20050727
  Serious: Yes (Death)
  Sender: FDA-Public Use
  Company Number: JP-NOVOPROD-240863

PATIENT
  Age: 0 Year

DRUGS (1)
  1. NOVOSEVEN [Suspect]
     Indication: GASTROINTESTINAL HAEMORRHAGE
     Dosage: 9.6 MG, UNK
     Dates: start: 20040101, end: 20040101

REACTIONS (3)
  - CONCOMITANT DISEASE PROGRESSION [None]
  - CONDITION AGGRAVATED [None]
  - GASTROINTESTINAL HAEMORRHAGE [None]
